FAERS Safety Report 5248391-6 (Version None)
Quarter: 2007Q1

REPORT INFORMATION
  Report Type: 
  Country: None (occurrence: None)
  Receive Date: 20070227
  Receipt Date: 20070216
  Transmission Date: 20070707
  Serious: Yes (Life-Threatening, Hospitalization, Other)
  Sender: FDA-Public Use
  Company Number: US-SHR-US-2007-001741

PATIENT
  Age: 72 Year
  Sex: Female
  Weight: 102 kg

DRUGS (10)
  1. MAGNEVIST [Suspect]
     Dosage: 20 ML, 1 DOSE
     Route: 042
     Dates: start: 20070108, end: 20070108
  2. ACTOS                                   /USA/ [Concomitant]
  3. AVAPRO [Concomitant]
  4. LIPITOR [Concomitant]
  5. ASPIRIN [Concomitant]
  6. VERAPAMIL [Concomitant]
  7. ACCUPRIL [Concomitant]
     Dosage: 80 MG, UNK
  8. GLYBURIDE [Concomitant]
     Dosage: 5 MG, UNK
  9. GLUCOPHAGE [Concomitant]
     Dosage: 2000 MG, BED T.
  10. CALCIUM [Concomitant]

REACTIONS (10)
  - ANAPHYLACTIC REACTION [None]
  - BLOOD GLUCOSE ABNORMAL [None]
  - BREATH SOUNDS ABNORMAL [None]
  - DYSPNOEA [None]
  - OXYGEN SATURATION DECREASED [None]
  - POLLAKIURIA [None]
  - SNEEZING [None]
  - THROAT IRRITATION [None]
  - THROAT TIGHTNESS [None]
  - WHEEZING [None]
